FAERS Safety Report 15296997 (Version 4)
Quarter: 2021Q2

REPORT INFORMATION
  Report Type: Report from Study
  Country: GB (occurrence: GB)
  Receive Date: 20180820
  Receipt Date: 20210412
  Transmission Date: 20210716
  Serious: Yes (Death, Hospitalization, Other)
  Sender: FDA-Public Use
  Company Number: GB-ASPEN-GLO2016GB012122

PATIENT

DRUGS (60)
  1. DEXAMETHASONE. [Suspect]
     Active Substance: DEXAMETHASONE
     Dosage: 20 MG
     Route: 065
     Dates: start: 20151024, end: 20151025
  2. POMALIDOMIDE [Suspect]
     Active Substance: POMALIDOMIDE
     Dosage: 84 MG EVERY 28 DAYS
     Route: 048
     Dates: start: 20160526, end: 20160618
  3. POMALIDOMIDE [Suspect]
     Active Substance: POMALIDOMIDE
     Dosage: 4 MG
     Route: 048
     Dates: start: 20151107, end: 20151118
  4. SALBUTAMOL [Concomitant]
     Active Substance: ALBUTEROL
     Dosage: 10MG, NEBULIZER
     Route: 065
  5. EZETIMIBE. [Concomitant]
     Active Substance: EZETIMIBE
     Indication: LIPIDS ABNORMAL
     Dosage: 10 MG
     Route: 065
  6. SENNA [Concomitant]
     Active Substance: SENNA LEAF\SENNOSIDES\SENNOSIDES A AND B
     Indication: CONSTIPATION
     Dosage: 7.5 MG
     Route: 065
  7. MEBEVERINE [Concomitant]
     Active Substance: MEBEVERINE
     Indication: IRRITABLE BOWEL SYNDROME
     Dosage: 405 MG, QD
     Route: 065
  8. LEVOMEPROMAZINE [Concomitant]
     Active Substance: LEVOMEPROMAZINE
     Indication: DEPRESSION
     Dosage: 12.5 MG
     Route: 065
  9. DEXAMETHASONE. [Suspect]
     Active Substance: DEXAMETHASONE
     Indication: PLASMA CELL MYELOMA
     Dosage: 160 MG EVERY 28 DAYS
     Route: 065
     Dates: start: 20151101
  10. DEXAMETHASONE. [Suspect]
     Active Substance: DEXAMETHASONE
     Dosage: 160 MG EVERY 28 DAYS
     Route: 048
     Dates: start: 20151024
  11. DEXAMETHASONE. [Suspect]
     Active Substance: DEXAMETHASONE
     Dosage: 20 MG
     Route: 065
     Dates: start: 20151017, end: 20151018
  12. DEXAMETHASONE. [Suspect]
     Active Substance: DEXAMETHASONE
     Dosage: 20 MG
     Route: 048
     Dates: start: 20151025
  13. POMALIDOMIDE [Suspect]
     Active Substance: POMALIDOMIDE
     Dosage: 4 MG
     Route: 048
     Dates: start: 20151128, end: 20151208
  14. LANSOPRAZOLE. [Concomitant]
     Active Substance: LANSOPRAZOLE
     Indication: GASTRITIS PROPHYLAXIS
     Dosage: 30 MG, QD
     Route: 065
  15. BECONASE AQ [Concomitant]
     Active Substance: BECLOMETHASONE DIPROPIONATE MONOHYDRATE
     Indication: RHINITIS
     Dosage: 200 MCG
     Route: 065
  16. IPRATROPIUM [Concomitant]
     Active Substance: IPRATROPIUM
     Indication: ASTHMA
     Dosage: 250 MCG
     Route: 065
  17. DEXAMETHASONE. [Suspect]
     Active Substance: DEXAMETHASONE
     Dosage: 20 MG WEEKLY
     Route: 065
     Dates: end: 20160625
  18. DEXAMETHASONE. [Suspect]
     Active Substance: DEXAMETHASONE
     Dosage: 20 UNK
     Route: 048
     Dates: start: 20151128
  19. DEXAMETHASONE. [Suspect]
     Active Substance: DEXAMETHASONE
     Dosage: 20 UNK
     Route: 048
     Dates: start: 20151107
  20. DEXAMETHASONE. [Suspect]
     Active Substance: DEXAMETHASONE
     Dosage: 20 UNK
     Route: 048
     Dates: start: 20151114
  21. POMALIDOMIDE [Suspect]
     Active Substance: POMALIDOMIDE
     Dosage: 4 MG
     Route: 048
     Dates: start: 20160811, end: 20160831
  22. QUININE SULPHATE [Concomitant]
     Active Substance: QUININE SULFATE
     Indication: MUSCLE SPASMS
     Dosage: 300 MG QD
     Route: 065
     Dates: start: 20150619
  23. CLEXANE [Concomitant]
     Active Substance: ENOXAPARIN SODIUM
     Indication: ANTICOAGULANT THERAPY
     Dosage: 40 MG
     Route: 065
  24. DEXAMETHASONE. [Suspect]
     Active Substance: DEXAMETHASONE
     Dosage: 160 MG EVERY 28 DAYS
     Route: 048
     Dates: start: 20160526, end: 20160625
  25. DEXAMETHASONE. [Suspect]
     Active Substance: DEXAMETHASONE
     Dosage: 160 MG EVERY 28 DAYS
     Route: 048
     Dates: start: 20151017
  26. DEXAMETHASONE. [Suspect]
     Active Substance: DEXAMETHASONE
     Dosage: 20 MG
     Route: 048
     Dates: start: 20151031
  27. POMALIDOMIDE [Suspect]
     Active Substance: POMALIDOMIDE
     Dosage: 4 MG
     Route: 048
     Dates: start: 20151010, end: 20151030
  28. DOMPERIDONE [Concomitant]
     Active Substance: DOMPERIDONE
     Indication: NAUSEA
     Dosage: AS NEEDED (MG), PRN
     Route: 065
  29. CHLORPHENAMINE [Concomitant]
     Active Substance: CHLORPHENIRAMINE MALEATE
     Indication: PRURITUS
     Dosage: UNK
     Route: 065
  30. NYSTATIN. [Concomitant]
     Active Substance: NYSTATIN
     Indication: INFECTION PROPHYLAXIS
     Dosage: 4 ML
     Route: 065
  31. PARACETAMOL [Concomitant]
     Active Substance: ACETAMINOPHEN
     Indication: PAIN
     Dosage: 4 G
     Route: 065
  32. DEXAMETHASONE. [Suspect]
     Active Substance: DEXAMETHASONE
     Dosage: 160 MG EVERY 28 DAYS
     Route: 048
     Dates: start: 20151025
  33. DEXAMETHASONE. [Suspect]
     Active Substance: DEXAMETHASONE
     Dosage: 20 MG
     Route: 048
     Dates: start: 20151121
  34. DEXAMETHASONE. [Suspect]
     Active Substance: DEXAMETHASONE
     Dosage: 20 UNK
     Dates: start: 20151122
  35. DEXAMETHASONE. [Suspect]
     Active Substance: DEXAMETHASONE
     Dosage: 20 MG
     Route: 048
     Dates: start: 20151011
  36. DEXAMETHASONE. [Suspect]
     Active Substance: DEXAMETHASONE
     Dosage: 20 MG
     Route: 048
     Dates: start: 20151018
  37. SALBUTAMOL [Concomitant]
     Active Substance: ALBUTEROL
     Indication: DYSPNOEA
     Dosage: 100 MG, QD
     Route: 065
     Dates: start: 20151009, end: 20151021
  38. DEXAMETHASONE. [Suspect]
     Active Substance: DEXAMETHASONE
     Dosage: 160 MG EVERY 28 DAYS
     Route: 048
     Dates: start: 20151018
  39. DEXAMETHASONE. [Suspect]
     Active Substance: DEXAMETHASONE
     Dosage: 160 MG EVERY 28 DAYS
     Route: 048
     Dates: start: 20151031
  40. DEXAMETHASONE. [Suspect]
     Active Substance: DEXAMETHASONE
     Dosage: 20 MG WEEKLY
     Route: 065
     Dates: start: 20160625
  41. DEXAMETHASONE. [Suspect]
     Active Substance: DEXAMETHASONE
     Dosage: 20 MG
     Route: 048
     Dates: start: 20151101
  42. INSULIN [Concomitant]
     Active Substance: INSULIN NOS
     Indication: TYPE 2 DIABETES MELLITUS
     Dosage: PRN OTHER
     Route: 065
  43. COTRIMOXAZOLE [Concomitant]
     Active Substance: SULFAMETHOXAZOLE\TRIMETHOPRIM
     Indication: INFECTION
     Route: 065
  44. DULOXETINE. [Concomitant]
     Active Substance: DULOXETINE
     Indication: DEPRESSION
     Dosage: 60 MG, QD
     Route: 065
     Dates: start: 2004
  45. DEXAMETHASONE. [Suspect]
     Active Substance: DEXAMETHASONE
     Dosage: 160 MG EVERY 28 DAYS
     Route: 048
     Dates: start: 20151010
  46. DEXAMETHASONE. [Suspect]
     Active Substance: DEXAMETHASONE
     Dosage: 160 MG EVERY 28 DAYS
     Route: 048
     Dates: start: 20151011
  47. DEXAMETHASONE. [Suspect]
     Active Substance: DEXAMETHASONE
     Dosage: 20 MG
     Route: 065
     Dates: start: 20151010, end: 20151011
  48. DEXAMETHASONE. [Suspect]
     Active Substance: DEXAMETHASONE
     Dosage: 20 MG
     Route: 065
     Dates: start: 20151021, end: 20151101
  49. DEXAMETHASONE. [Suspect]
     Active Substance: DEXAMETHASONE
     Dosage: 20 UNK
     Route: 048
     Dates: start: 20151024
  50. ZOMORPH [Concomitant]
     Active Substance: MORPHINE SULFATE
     Indication: PAIN
     Dosage: 80 MG, QD
     Route: 065
     Dates: start: 20151009
  51. DERMOVATE [Concomitant]
     Active Substance: CLOBETASOL
     Indication: FOLLICULITIS
     Dosage: UNK
     Route: 061
  52. ACICLOVIR [Concomitant]
     Active Substance: ACYCLOVIR
     Indication: ANTIVIRAL PROPHYLAXIS
     Dosage: 800 MG
     Route: 065
  53. COTRIMOXAZOLE [Concomitant]
     Active Substance: SULFAMETHOXAZOLE\TRIMETHOPRIM
     Indication: INFECTION PROPHYLAXIS
     Dosage: 1920 MG
     Route: 065
  54. DEXAMETHASONE. [Suspect]
     Active Substance: DEXAMETHASONE
     Dosage: 20 UNK
     Route: 048
     Dates: start: 20151115
  55. POMALIDOMIDE [Suspect]
     Active Substance: POMALIDOMIDE
     Indication: PLASMA CELL MYELOMA
     Dosage: 84 MG EVERY 28 DAYS
     Route: 048
     Dates: start: 20151010, end: 20151013
  56. CHLORHEXIDINE GLUCONATE. [Concomitant]
     Active Substance: CHLORHEXIDINE GLUCONATE
     Indication: SKIN IRRITATION
     Dosage: 40 ML
     Route: 048
  57. ZOMORPH [Concomitant]
     Active Substance: MORPHINE SULFATE
     Dosage: 5?10 ONE DOSE EVERY 2 HOURS
     Route: 065
     Dates: start: 20151008
  58. BENZYDAMINE [Concomitant]
     Active Substance: BENZYDAMINE
     Indication: INFLAMMATION
     Dosage: 15 ML
     Route: 065
  59. ORAMORPH [Concomitant]
     Active Substance: MORPHINE SULFATE
     Indication: PAIN
     Dosage: 5?10MG, ONE DOSE EVERY 2 HOURS
     Route: 065
     Dates: start: 20151205
  60. ROSUVASTATIN. [Concomitant]
     Active Substance: ROSUVASTATIN
     Indication: LIPIDS ABNORMAL
     Dosage: 10 MG
     Route: 065

REACTIONS (5)
  - Peripheral sensory neuropathy [Not Recovered/Not Resolved]
  - Anaemia [Recovered/Resolved]
  - Oedema peripheral [Recovered/Resolved with Sequelae]
  - Neutropenia [Recovered/Resolved]
  - Lower respiratory tract infection [Recovered/Resolved]

NARRATIVE: CASE EVENT DATE: 20151124
